FAERS Safety Report 4421874-4 (Version None)
Quarter: 2004Q3

REPORT INFORMATION
  Report Type: 
  Country: None (occurrence: None)
  Receive Date: 20040806
  Receipt Date: 20040726
  Transmission Date: 20050211
  Serious: No
  Sender: FDA-Public Use
  Company Number: 04H-087-0268165-00

PATIENT
  Age: 60 Year
  Sex: Male
  Weight: 65 kg

DRUGS (2)
  1. HEPARIN SODIUM [Suspect]
     Indication: ANTICOAGULANT THERAPY
     Dosage: 5000 UNIT, BOLUS DOSE, INTRAVENOUS
     Route: 042
  2. HEPARIN SODIUM [Suspect]
     Indication: ANTICOAGULANT THERAPY
     Dosage: 500 UNITS/HR, CONTINUOUS, INTRAVENOUS
     Route: 042

REACTIONS (3)
  - CATHETER RELATED COMPLICATION [None]
  - CORONARY ARTERY THROMBOSIS [None]
  - HEPARIN-INDUCED THROMBOCYTOPENIA [None]
